FAERS Safety Report 19588771 (Version 3)
Quarter: 2022Q2

REPORT INFORMATION
  Report Type: Spontaneous
  Country: JP (occurrence: JP)
  Receive Date: 20210721
  Receipt Date: 20220608
  Transmission Date: 20220721
  Serious: Yes (Other)
  Sender: FDA-Public Use
  Company Number: JP-PFIZER INC-2020402107

PATIENT
  Age: 9 Decade
  Sex: Female

DRUGS (8)
  1. INLYTA [Suspect]
     Active Substance: AXITINIB
     Dosage: 10 MG
     Dates: end: 20201110
  2. INLYTA [Suspect]
     Active Substance: AXITINIB
     Dosage: 6 MG, 1X/DAY
     Dates: start: 20201201, end: 20210202
  3. INLYTA [Suspect]
     Active Substance: AXITINIB
     Dosage: 4 MG, DAILY
     Dates: start: 20210216
  4. BAVENCIO [Suspect]
     Active Substance: AVELUMAB
     Dosage: UNK
     Dates: start: 20201013, end: 20201013
  5. BAVENCIO [Suspect]
     Active Substance: AVELUMAB
     Dosage: UNK
     Dates: start: 20201027, end: 20201027
  6. BAVENCIO [Suspect]
     Active Substance: AVELUMAB
     Dosage: UNK
     Dates: end: 20201110
  7. BAVENCIO [Suspect]
     Active Substance: AVELUMAB
     Dosage: UNK
     Dates: start: 20201117
  8. BAVENCIO [Suspect]
     Active Substance: AVELUMAB
     Dosage: UNK
     Dates: start: 20201201

REACTIONS (16)
  - Hyperthyroidism [Unknown]
  - Blood pressure decreased [Unknown]
  - Infusion related reaction [Recovered/Resolved]
  - Pyrexia [Recovered/Resolved]
  - Palmar-plantar erythrodysaesthesia syndrome [Unknown]
  - Liver function test increased [Recovered/Resolved]
  - Platelet count decreased [Recovered/Resolved]
  - Dysphonia [Not Recovered/Not Resolved]
  - Hepatic function abnormal [Recovered/Resolved]
  - Blood pressure increased [Recovered/Resolved]
  - Malaise [Recovering/Resolving]
  - Blood thyroid stimulating hormone increased [Recovered/Resolved]
  - Rash [Recovered/Resolved]
  - Diarrhoea [Unknown]
  - Decreased appetite [Unknown]
  - Fatigue [Unknown]

NARRATIVE: CASE EVENT DATE: 20200101
